FAERS Safety Report 24787392 (Version 1)
Quarter: 2024Q4

REPORT INFORMATION
  Report Type: Other
  Country: RO (occurrence: RO)
  Receive Date: 20241230
  Receipt Date: 20241230
  Transmission Date: 20250115
  Serious: Yes (Life-Threatening, Hospitalization)
  Sender: Steriscience PTE
  Company Number: RO-ROMPHARMP-202412062

PATIENT
  Age: 34 Week
  Sex: Male

DRUGS (3)
  1. MEROPENEM [Suspect]
     Active Substance: MEROPENEM
     Indication: Klebsiella sepsis
     Dosage: UNK
     Route: 042
  2. COLISTIN [Suspect]
     Active Substance: COLISTIN
     Indication: Klebsiella sepsis
     Dosage: A NEGATIVE BLOOD CULTURE WAS FINALLY OBTAINED AFTER THE IMPLEMENTATION OF A NEW TREATMENT PLAN, WHIC
     Route: 042
  3. TIGECYCLINE [Suspect]
     Active Substance: TIGECYCLINE
     Indication: Klebsiella sepsis
     Dosage: UNK
     Route: 042

REACTIONS (3)
  - Bacterial infection [None]
  - Off label use [None]
  - Drug ineffective [None]
